FAERS Safety Report 12065983 (Version 1)
Quarter: 2016Q1

REPORT INFORMATION
  Report Type: Spontaneous
  Country: US (occurrence: US)
  Receive Date: 20160210
  Receipt Date: 20160210
  Transmission Date: 20160526
  Serious: No
  Sender: FDA-Public Use
  Company Number: US-ALLERGAN-1525868US

PATIENT
  Sex: Female

DRUGS (1)
  1. BOTOX COSMETIC [Suspect]
     Active Substance: ONABOTULINUMTOXINA
     Indication: PRODUCT USED FOR UNKNOWN INDICATION
     Dosage: UNK, SINGLE
     Route: 030
     Dates: start: 20151123, end: 20151123

REACTIONS (9)
  - Erythema [Not Recovered/Not Resolved]
  - Skin exfoliation [Recovering/Resolving]
  - Skin hyperpigmentation [Recovering/Resolving]
  - Periorbital oedema [Recovering/Resolving]
  - Off label use [Unknown]
  - Swelling face [Recovering/Resolving]
  - Urticaria [Recovering/Resolving]
  - Sinus headache [Recovering/Resolving]
  - Eye swelling [Recovering/Resolving]

NARRATIVE: CASE EVENT DATE: 201512
